FAERS Safety Report 22022115 (Version 20)
Quarter: 2024Q4

REPORT INFORMATION
  Report Type: Spontaneous
  Country: US (occurrence: US)
  Receive Date: 20230222
  Receipt Date: 20241115
  Transmission Date: 20250114
  Serious: Yes (Other)
  Sender: PFIZER
  Company Number: US-PFIZER INC-202300071820

PATIENT
  Age: 79 Year
  Sex: Female
  Weight: 75.3 kg

DRUGS (19)
  1. TIKOSYN [Suspect]
     Active Substance: DOFETILIDE
     Indication: Cardiac disorder
     Dosage: UNK
     Dates: start: 2004
  2. TIKOSYN [Suspect]
     Active Substance: DOFETILIDE
     Indication: Heart rate irregular
     Dosage: 125MCG, 4 CAPSULES A DAY, 2 CAPSULES IN MORNING AND 2 AT NIGHT
     Route: 048
     Dates: start: 2005
  3. TIKOSYN [Suspect]
     Active Substance: DOFETILIDE
     Dosage: UNK
     Dates: start: 2008
  4. TIKOSYN [Suspect]
     Active Substance: DOFETILIDE
     Dosage: TWO 250 MCG A DAY (MORNING AND NIGHT)
  5. TIKOSYN [Suspect]
     Active Substance: DOFETILIDE
     Dosage: 250 UG, DAILY
  6. TIKOSYN [Suspect]
     Active Substance: DOFETILIDE
     Dosage: TAKE TWO (STRENGTH: 125UG) AT A TIME TWICE A DAY OF THE 125^S
  7. TIKOSYN [Suspect]
     Active Substance: DOFETILIDE
     Dosage: 250 UG
  8. JANUVIA [Concomitant]
     Active Substance: SITAGLIPTIN PHOSPHATE
     Indication: Diabetes mellitus
     Dosage: 50MG TABLET, ONE TABLET ONCE A DAY
     Dates: start: 2000
  9. PRADAXA [Concomitant]
     Active Substance: DABIGATRAN ETEXILATE MESYLATE
     Indication: Coagulopathy
     Dosage: 75MG, CAPSULE, ONE TWICE A DAY
     Dates: start: 2004
  10. PRADAXA [Concomitant]
     Active Substance: DABIGATRAN ETEXILATE MESYLATE
     Indication: Hypertension
  11. PRADAXA [Concomitant]
     Active Substance: DABIGATRAN ETEXILATE MESYLATE
     Indication: Cerebrovascular accident prophylaxis
  12. TOPROL XL [Concomitant]
     Active Substance: METOPROLOL SUCCINATE
     Indication: Hypertension
     Dosage: 25 MG, 1X/DAY
  13. TOPROL XL [Concomitant]
     Active Substance: METOPROLOL SUCCINATE
     Dosage: 25 MG, 2X/DAY (EXTENDED RELEASE, FOOTBALL SHAPED TINY PILL)
     Route: 048
     Dates: start: 2004
  14. POTASSIUM [Concomitant]
     Active Substance: POTASSIUM
     Indication: Hypertension
     Dosage: 20MG, EXTENDED RELEASE, ONE BIG TABLET A DAY
     Dates: start: 2005
  15. FLORIDRAL [Concomitant]
     Indication: Polyuria
     Dosage: UNK
  16. ROSUVASTATIN [Concomitant]
     Active Substance: ROSUVASTATIN
     Indication: Blood cholesterol abnormal
     Dosage: 10MG LITTLE ROUND PILL, CONFIRMED TABLET, ONE A DAY
     Dates: start: 2008
  17. FUROSEMIDE [Concomitant]
     Active Substance: FUROSEMIDE
     Indication: Diuretic therapy
     Dosage: 80MG TABLET, ONE TABLET A DAY
     Dates: start: 2005
  18. OXAZEPAM [Concomitant]
     Active Substance: OXAZEPAM
     Indication: Sleep disorder
     Dosage: 30MG, LITTLE PURPLE CAPLET, ONE AT NIGHT
     Dates: start: 2004
  19. LUTEIN [Concomitant]
     Active Substance: LUTEIN
     Indication: Macular degeneration
     Dosage: 20 MG, OVER THE COUNTER, LITTLE GEL FOOTBALL

REACTIONS (3)
  - Cardiac failure congestive [Unknown]
  - Dysphagia [Unknown]
  - Dizziness [Unknown]
